FAERS Safety Report 8710993 (Version 2)
Quarter: 2013Q4

REPORT INFORMATION
  Report Type: Spontaneous
  Country: US (occurrence: US)
  Receive Date: 20120807
  Receipt Date: 20131031
  Transmission Date: 20140711
  Serious: No
  Sender: FDA-Public Use
  Company Number: US-009507513-2012SP033706

PATIENT
  Sex: Male

DRUGS (3)
  1. VICTRELIS [Suspect]
     Indication: HEPATITIS C
     Dosage: 4 CAPSULES
     Route: 048
     Dates: start: 20120113
  2. PEG-INTRON [Suspect]
     Indication: HEPATITIS C
     Dates: start: 201110
  3. RIBASPHERE [Suspect]
     Indication: HEPATITIS C
     Dates: start: 201110

REACTIONS (1)
  - Haemoglobin decreased [Not Recovered/Not Resolved]
